FAERS Safety Report 6958082-9 (Version None)
Quarter: 2010Q3

REPORT INFORMATION
  Report Type: 
  Country: None (occurrence: None)
  Receive Date: 20100831
  Receipt Date: 20100820
  Transmission Date: 20110219
  Serious: Yes (Hospitalization)
  Sender: FDA-Public Use
  Company Number: US-BAXTER-2010BH022016

PATIENT

DRUGS (4)
  1. GAMMAGARD LIQUID [Suspect]
     Indication: CHRONIC INFLAMMATORY DEMYELINATING POLYRADICULONEUROPATHY
     Route: 065
  2. GAMMAGARD LIQUID [Suspect]
     Indication: OFF LABEL USE
     Route: 065
  3. GAMMAGARD LIQUID [Suspect]
     Route: 065
  4. GAMMAGARD LIQUID [Suspect]
     Route: 065

REACTIONS (3)
  - ARTHRALGIA [None]
  - CHILLS [None]
  - PYREXIA [None]
